FAERS Safety Report 15439784 (Version 2)
Quarter: 2018Q4

REPORT INFORMATION
  Report Type: Report from Study
  Country: None (occurrence: DE)
  Receive Date: 20180928
  Receipt Date: 20181116
  Transmission Date: 20190204
  Serious: Yes (Death, Other)
  Sender: FDA-Public Use
  Company Number: DE-ABBVIE-18S-062-2502444-00

PATIENT
  Age: 82 Year
  Sex: Female
  Weight: 48 kg

DRUGS (1)
  1. DUODOPA [Suspect]
     Active Substance: CARBIDOPA\LEVODOPA
     Indication: PRODUCT USED FOR UNKNOWN INDICATION
     Dosage: MD 8 ML CRD 3.2 ML/H ED 1 ML
     Route: 050
     Dates: start: 20151001

REACTIONS (2)
  - Death [Fatal]
  - Ileus [Unknown]

NARRATIVE: CASE EVENT DATE: 20180921
